FAERS Safety Report 14737334 (Version 2)
Quarter: 2018Q2

REPORT INFORMATION
  Report Type: Spontaneous
  Country: AT (occurrence: AT)
  Receive Date: 20180409
  Receipt Date: 20180428
  Transmission Date: 20180711
  Serious: Yes (Other)
  Sender: FDA-Public Use
  Company Number: AT-ABBVIE-18K-009-2310051-00

PATIENT
  Sex: Female
  Weight: 82 kg

DRUGS (9)
  1. PREDNISOLON [Concomitant]
     Active Substance: PREDNISOLONE
     Indication: PRODUCT USED FOR UNKNOWN INDICATION
     Dates: start: 2011, end: 2011
  2. METHOTREXATE. [Concomitant]
     Active Substance: METHOTREXATE
     Dosage: TAPERED IN SUMMER 2011 TO 15MG PER WEEK.
     Dates: start: 2011
  3. HUMIRA [Suspect]
     Active Substance: ADALIMUMAB
     Route: 058
     Dates: start: 2011
  4. ATORVASTATIN [Concomitant]
     Active Substance: ATORVASTATIN
     Dosage: DAILY.
  5. VITAMIN D [Concomitant]
     Active Substance: CHOLECALCIFEROL
     Indication: PRODUCT USED FOR UNKNOWN INDICATION
  6. SIMVASTATIN. [Concomitant]
     Active Substance: SIMVASTATIN
     Indication: PRODUCT USED FOR UNKNOWN INDICATION
     Dosage: EVENING ADMINISTRATIONS
  7. HUMIRA [Suspect]
     Active Substance: ADALIMUMAB
     Indication: RHEUMATOID ARTHRITIS
     Route: 058
     Dates: start: 20050718, end: 2010
  8. METHOTREXATE. [Concomitant]
     Active Substance: METHOTREXATE
     Indication: PRODUCT USED FOR UNKNOWN INDICATION
     Dosage: TAPERED IN SUMMER 2011
  9. ATORVASTATIN [Concomitant]
     Active Substance: ATORVASTATIN
     Indication: PRODUCT USED FOR UNKNOWN INDICATION
     Dosage: DAILY.
     Dates: start: 2014

REACTIONS (13)
  - Foot deformity [Recovering/Resolving]
  - Mycobacterium tuberculosis complex test positive [Recovering/Resolving]
  - C-reactive protein increased [Unknown]
  - Joint dislocation [Recovering/Resolving]
  - Bone density abnormal [Recovering/Resolving]
  - Mental impairment [Unknown]
  - Rheumatoid arthritis [Unknown]
  - Tendon rupture [Recovering/Resolving]
  - General physical health deterioration [Unknown]
  - Pain in extremity [Recovering/Resolving]
  - Carotid arteriosclerosis [Recovering/Resolving]
  - Osteoarthritis [Recovering/Resolving]
  - Exposure to communicable disease [Unknown]

NARRATIVE: CASE EVENT DATE: 2005
